FAERS Safety Report 6405393-1 (Version None)
Quarter: 2009Q4

REPORT INFORMATION
  Report Type: 
  Country: None (occurrence: None)
  Receive Date: 20091019
  Receipt Date: 20091007
  Transmission Date: 20100525
  Serious: Yes (Life-Threatening)
  Sender: FDA-Public Use
  Company Number: FR-PFIZER INC-2009279315

PATIENT
  Age: 84 Year

DRUGS (7)
  1. ARTHROTEC [Suspect]
     Dosage: UNK
     Route: 048
     Dates: end: 20080124
  2. METFORMIN HCL [Suspect]
     Indication: DIABETES MELLITUS
     Dosage: UNK
     Route: 048
     Dates: end: 20080124
  3. CORDARONE [Concomitant]
  4. APROVEL [Concomitant]
  5. SELOKEN [Concomitant]
  6. OROCAL [Concomitant]
  7. NOCTAMID [Suspect]

REACTIONS (8)
  - ANAEMIA [None]
  - BRADYCARDIA [None]
  - COLITIS ISCHAEMIC [None]
  - DIVERTICULUM INTESTINAL [None]
  - FALL [None]
  - HAEMODYNAMIC INSTABILITY [None]
  - RECTAL HAEMORRHAGE [None]
  - SHOCK HAEMORRHAGIC [None]
